FAERS Safety Report 9587753 (Version 3)
Quarter: 2014Q1

REPORT INFORMATION
  Report Type: Spontaneous
  Country: GB (occurrence: GB)
  Receive Date: 20131003
  Receipt Date: 20140327
  Transmission Date: 20141002
  Serious: Yes (Hospitalization)
  Sender: FDA-Public Use
  Company Number: GB-BAUSCH-BL-2013-005304

PATIENT
  Age: 84 Year
  Sex: Female
  Weight: 63.9 kg

DRUGS (3)
  1. DEXAMETHASONE [Suspect]
     Indication: PLASMA CELL MYELOMA
     Route: 048
     Dates: start: 20130815, end: 20130930
  2. REVLIMID [Suspect]
     Indication: PLASMA CELL MYELOMA
     Route: 048
     Dates: start: 20130815, end: 20130930
  3. REVLIMID [Suspect]
     Route: 048
     Dates: start: 20130825, end: 20130827

REACTIONS (2)
  - Dyspnoea [Recovered/Resolved]
  - Performance status decreased [Not Recovered/Not Resolved]
